FAERS Safety Report 21379670 (Version 1)
Quarter: 2022Q3

REPORT INFORMATION
  Report Type: Spontaneous
  Country: US (occurrence: None)
  Receive Date: 20220923
  Receipt Date: 20220923
  Transmission Date: 20221027
  Serious: Yes (Hospitalization)
  Sender: FDA-Public Use
  Company Number: None

PATIENT
  Age: 65 Year
  Sex: Male
  Weight: 116 kg

DRUGS (1)
  1. NAPROXEN [Suspect]
     Active Substance: NAPROXEN
     Indication: Pain
     Dosage: FREQUENCY : TWICE A DAY;?
     Route: 048
     Dates: start: 20200204, end: 20220701

REACTIONS (7)
  - Transfusion [None]
  - Lower gastrointestinal haemorrhage [None]
  - Diverticulum intestinal haemorrhagic [None]
  - Post procedural haemorrhage [None]
  - Blood loss anaemia [None]
  - Deep vein thrombosis [None]
  - Gastric haemorrhage [None]

NARRATIVE: CASE EVENT DATE: 20220628
